FAERS Safety Report 7126503-7 (Version None)
Quarter: 2010Q4

REPORT INFORMATION
  Report Type: 
  Country: None (occurrence: None)
  Receive Date: 20101129
  Receipt Date: 20101117
  Transmission Date: 20110411
  Serious: Yes (Other)
  Sender: FDA-Public Use
  Company Number: SE-PFIZER INC-2010151915

PATIENT
  Sex: Female

DRUGS (4)
  1. LYRICA [Suspect]
     Indication: INTERVERTEBRAL DISC PROTRUSION
     Dosage: UNK
     Dates: end: 20061203
  2. LYRICA [Suspect]
     Indication: CERVICOBRACHIAL SYNDROME
  3. LYRICA [Suspect]
     Indication: BRACHIAL PLEXUS INJURY
  4. LYRICA [Suspect]
     Indication: NEURALGIA

REACTIONS (4)
  - ANGINA PECTORIS [None]
  - ARRHYTHMIA [None]
  - DYSPNOEA [None]
  - TACHYCARDIA [None]
